FAERS Safety Report 15252031 (Version 1)
Quarter: 2018Q3

REPORT INFORMATION
  Report Type: Spontaneous
  Country: US (occurrence: US)
  Receive Date: 20180717
  Receipt Date: 20180717
  Transmission Date: 20181010
  Serious: No
  Sender: FDA-Public Use
  Company Number: None

PATIENT
  Age: 93 Year
  Sex: Male

DRUGS (1)
  1. CAPECITABINE TAB 500MG [Suspect]
     Active Substance: CAPECITABINE
     Dates: start: 20180716, end: 20180717

REACTIONS (4)
  - Fatigue [None]
  - Dyspnoea [None]
  - Asthenia [None]
  - Malaise [None]

NARRATIVE: CASE EVENT DATE: 20180717
